FAERS Safety Report 6910915-8 (Version None)
Quarter: 2010Q3

REPORT INFORMATION
  Report Type: 
  Country: None (occurrence: None)
  Receive Date: 20100806
  Receipt Date: 20100730
  Transmission Date: 20110219
  Serious: Yes (Death, Hospitalization)
  Sender: FDA-Public Use
  Company Number: A0778552A

PATIENT
  Sex: Male

DRUGS (2)
  1. AVANDIA [Suspect]
     Dosage: 4MG PER DAY
     Route: 048
     Dates: start: 20061129, end: 20070511
  2. AVANDAMET [Suspect]
     Route: 048
     Dates: start: 20031013

REACTIONS (2)
  - CARDIAC DEATH [None]
  - MYOCARDIAL INFARCTION [None]
